FAERS Safety Report 18562405 (Version 1)
Quarter: 2020Q4

REPORT INFORMATION
  Report Type: Spontaneous
  Country: US (occurrence: US)
  Receive Date: 20201130
  Receipt Date: 20201130
  Transmission Date: 20210114
  Serious: Yes (Other)
  Sender: FDA-Public Use
  Company Number: US-BAUSCH-BL-2020-034065

PATIENT
  Age: 66 Year
  Sex: Male

DRUGS (2)
  1. TRETINOIN CREAM 0.1% [Suspect]
     Active Substance: TRETINOIN
     Indication: ACNE
     Dosage: 1 APPLICATION A DAY AT BEDTIME
     Route: 061
     Dates: start: 202010, end: 2020
  2. RETINOL [Concomitant]
     Active Substance: RETINOL
     Indication: ACNE
     Route: 061

REACTIONS (2)
  - Diarrhoea [Not Recovered/Not Resolved]
  - Haemorrhoidal haemorrhage [Not Recovered/Not Resolved]

NARRATIVE: CASE EVENT DATE: 2020
